FAERS Safety Report 8387223-4 (Version None)
Quarter: 2012Q2

REPORT INFORMATION
  Report Type: 
  Country: None (occurrence: None)
  Receive Date: 20120525
  Receipt Date: 20120523
  Transmission Date: 20120825
  Serious: No
  Sender: FDA-Public Use
  Company Number: US-ROCHE-1061764

PATIENT
  Sex: Female
  Weight: 130 kg

DRUGS (8)
  1. GS 9451 (NS3 PROTEASE INHIBITOR) [Suspect]
     Indication: HEPATITIS C
     Route: 048
     Dates: start: 20111018
  2. TEGOBUVIR [Suspect]
     Indication: HEPATITIS C
     Route: 048
     Dates: start: 20111018
  3. ALBUTEROL [Concomitant]
     Indication: COUGH
     Dates: start: 20030101
  4. COPEGUS [Suspect]
     Indication: HEPATITIS C
     Route: 048
     Dates: start: 20111018
  5. ZOLPIDEM [Concomitant]
     Indication: INSOMNIA
     Dates: start: 20090101
  6. GS 5885 (HCV NS5A INHIBITOR) [Suspect]
     Indication: HEPATITIS C
     Route: 048
     Dates: start: 20111018
  7. FLUTICASONE PROPIONATE [Concomitant]
     Indication: COUGH
     Dates: start: 20120106
  8. DILTIAZEM [Concomitant]
     Indication: HYPERTENSION
     Dates: start: 20110928

REACTIONS (2)
  - IRITIS [None]
  - VITRITIS [None]
